FAERS Safety Report 6920926-4 (Version None)
Quarter: 2010Q3

REPORT INFORMATION
  Report Type: 
  Country: None (occurrence: None)
  Receive Date: 20100812
  Receipt Date: 20100804
  Transmission Date: 20110219
  Serious: Yes (Other)
  Sender: FDA-Public Use
  Company Number: US-SANOFI-AVENTIS-2010SA046959

PATIENT
  Age: 34 Year
  Sex: Female

DRUGS (1)
  1. APIDRA [Suspect]
     Dosage: DOSE:35 UNIT(S)
     Route: 058
     Dates: start: 20100501, end: 20100707

REACTIONS (7)
  - ABDOMINAL DISCOMFORT [None]
  - FEELING ABNORMAL [None]
  - MENSTRUAL DISORDER [None]
  - MYALGIA [None]
  - PALPITATIONS [None]
  - RASH [None]
  - SYNCOPE [None]
